FAERS Safety Report 6668961-8 (Version None)
Quarter: 2010Q2

REPORT INFORMATION
  Report Type: 
  Country: None (occurrence: None)
  Receive Date: 20100406
  Receipt Date: 20100324
  Transmission Date: 20101027
  Serious: Yes (Other)
  Sender: FDA-Public Use
  Company Number: GB-BAYER-201011912GPV

PATIENT
  Age: 50 Year
  Sex: Female

DRUGS (2)
  1. MIRENA [Suspect]
     Indication: HORMONE REPLACEMENT THERAPY
     Route: 015
  2. CLIMAVAL [Suspect]
     Indication: HORMONE REPLACEMENT THERAPY

REACTIONS (1)
  - TRANSIENT GLOBAL AMNESIA [None]
